FAERS Safety Report 5849647-6 (Version None)
Quarter: 2008Q3

REPORT INFORMATION
  Report Type: 
  Country: None (occurrence: None)
  Receive Date: 20080731
  Receipt Date: 20080404
  Transmission Date: 20090109
  Serious: No
  Sender: FDA-Public Use
  Company Number: US200804001460

PATIENT
  Age: 53 Year
  Sex: Female
  Weight: 118.4 kg

DRUGS (11)
  1. BYETTA [Suspect]
     Indication: WEIGHT CONTROL
     Dosage: 10 UG, 2/D, SUBCUTANEOUS
     Route: 058
     Dates: start: 20080319
  2. WELLBUTRIN [Concomitant]
  3. DETROL [Concomitant]
  4. BENAZEPRIL HCL [Concomitant]
  5. PROTONIX [Concomitant]
  6. HYDROCHLOROTHIAZIDE [Concomitant]
  7. ZINC (ZINC) [Concomitant]
  8. CALCIUM (CALCIUM) [Concomitant]
  9. MAGNESIUM (MAGNESIUM) [Concomitant]
  10. VITAMIN D [Concomitant]
  11. IRON (IRON) [Concomitant]

REACTIONS (4)
  - ANXIETY [None]
  - DECREASED APPETITE [None]
  - FEELING JITTERY [None]
  - INTENTIONAL OVERDOSE [None]
